FAERS Safety Report 25907564 (Version 1)
Quarter: 2025Q4

REPORT INFORMATION
  Report Type: Report from Study
  Country: CN (occurrence: CN)
  Receive Date: 20251010
  Receipt Date: 20251010
  Transmission Date: 20260118
  Serious: Yes (Other)
  Sender: RANBAXY
  Company Number: CN-SUN PHARMACEUTICAL INDUSTRIES LTD-2025R1-530693

PATIENT
  Age: 8 Year
  Sex: Female
  Weight: 21.5 kg

DRUGS (2)
  1. INDOMETHACIN [Suspect]
     Active Substance: INDOMETHACIN
     Indication: Bartter^s syndrome
     Dosage: UNK
     Route: 048
  2. POTASSIUM CHLORIDE [Suspect]
     Active Substance: POTASSIUM CHLORIDE
     Indication: Bartter^s syndrome
     Dosage: UNK
     Route: 048

REACTIONS (1)
  - Apparent mineralocorticoid excess [Recovered/Resolved]
